FAERS Safety Report 7639374-7 (Version None)
Quarter: 2011Q3

REPORT INFORMATION
  Report Type: 
  Country: None (occurrence: None)
  Receive Date: 20110727
  Receipt Date: 20110718
  Transmission Date: 20111222
  Serious: Yes (Hospitalization)
  Sender: FDA-Public Use
  Company Number: US-ASTRAZENECA-2011SE43056

PATIENT
  Age: 70 Year
  Sex: Male
  Weight: 104.3 kg

DRUGS (1)
  1. SYMBICORT [Suspect]
     Indication: BRONCHITIS
     Dosage: 160/4.5 MCG TWO PUFFS, BID
     Route: 055
     Dates: start: 20110201

REACTIONS (5)
  - BACK PAIN [None]
  - CONVULSION [None]
  - FOAMING AT MOUTH [None]
  - OFF LABEL USE [None]
  - LOSS OF CONSCIOUSNESS [None]
